FAERS Safety Report 13791483 (Version 4)
Quarter: 2017Q4

REPORT INFORMATION
  Report Type: Spontaneous
  Country: JP (occurrence: JP)
  Receive Date: 20170725
  Receipt Date: 20171004
  Transmission Date: 20180320
  Serious: Yes (Life-Threatening, Hospitalization)
  Sender: FDA-Public Use
  Company Number: JP-ALLERGAN-1730943US

PATIENT
  Age: 60 Year
  Sex: Male
  Weight: 61 kg

DRUGS (7)
  1. MAGMITT [Concomitant]
     Active Substance: MAGNESIUM OXIDE
     Indication: CONSTIPATION
     Dosage: UNK
     Route: 048
     Dates: end: 20170713
  2. LUNESTA [Concomitant]
     Active Substance: ESZOPICLONE
     Indication: PRODUCT USED FOR UNKNOWN INDICATION
     Dosage: 2 MG, QD
     Route: 048
     Dates: start: 20170705, end: 20170714
  3. URSODEOXYCHOLIC ACID - BP [Suspect]
     Active Substance: URSODIOL
     Indication: LIVER DISORDER
     Dosage: 100 MG X 1.5/DAY
     Route: 048
     Dates: start: 20170529, end: 20170714
  4. HARNAL [Concomitant]
     Active Substance: TAMSULOSIN HYDROCHLORIDE
     Indication: DYSURIA
     Dosage: 0.2 MG, QD
     Route: 048
     Dates: start: 20170529, end: 20170714
  5. CYANAMIDE [Suspect]
     Active Substance: CYANAMIDE
     Indication: ALCOHOLISM
     Dosage: 100 MG, QD
     Route: 048
     Dates: start: 20170629, end: 20170708
  6. CYANAMIDE [Suspect]
     Active Substance: CYANAMIDE
     Dosage: 20 MG, QD
     Route: 048
     Dates: start: 20170709, end: 20170714
  7. UBRETID [Concomitant]
     Active Substance: DISTIGMINE BROMIDE
     Indication: NEUROGENIC BLADDER
     Dosage: 5 MG, QD
     Route: 048
     Dates: start: 20170529, end: 20170714

REACTIONS (2)
  - Toxic epidermal necrolysis [Recovered/Resolved]
  - Pancytopenia [Recovered/Resolved]

NARRATIVE: CASE EVENT DATE: 20170712
